FAERS Safety Report 7790770-7 (Version None)
Quarter: 2011Q3

REPORT INFORMATION
  Report Type: 
  Country: None (occurrence: None)
  Receive Date: 20110930
  Receipt Date: 20081201
  Transmission Date: 20111222
  Serious: Yes (Other)
  Sender: FDA-Public Use
  Company Number: PHEH2008US10678

PATIENT
  Sex: Male

DRUGS (5)
  1. COUMADIN [Concomitant]
  2. OXYCODONE [Concomitant]
  3. PRILOSEC [Concomitant]
  4. LOVENOX [Concomitant]
  5. ZOMETA [Suspect]
     Indication: MULTIPLE MYELOMA

REACTIONS (15)
  - OVERDOSE [None]
  - PAIN [None]
  - DISCOMFORT [None]
  - QUALITY OF LIFE DECREASED [None]
  - ACTIVITIES OF DAILY LIVING IMPAIRED [None]
  - ANHEDONIA [None]
  - INJURY [None]
  - PHYSICAL DISABILITY [None]
  - EMOTIONAL DISTRESS [None]
  - ANXIETY [None]
  - LIFE EXPECTANCY SHORTENED [None]
  - OSTEONECROSIS OF JAW [None]
  - MASTICATION DISORDER [None]
  - EXPOSED BONE IN JAW [None]
  - DEFORMITY [None]
